FAERS Safety Report 6658691-0 (Version None)
Quarter: 2010Q1

REPORT INFORMATION
  Report Type: 
  Country: None (occurrence: None)
  Receive Date: 20100330
  Receipt Date: 20100318
  Transmission Date: 20100710
  Serious: Yes (Hospitalization, Other)
  Sender: FDA-Public Use
  Company Number: PHHY2010US17241

PATIENT
  Age: 45 Year
  Sex: Female

DRUGS (9)
  1. MYCOPHENOLIC ACID [Suspect]
     Indication: RENAL TRANSPLANT
     Dosage: 720 MG, BID
  2. PREDNISONE [Suspect]
     Indication: RENAL TRANSPLANT
     Dosage: 5 MG DAILY
  3. PREDNISONE [Suspect]
     Dosage: 15 MG DAILY
     Route: 048
  4. TACROLIMUS [Suspect]
     Indication: RENAL TRANSPLANT
     Dosage: 5 MG, BID
  5. THYMOGLOBULIN [Concomitant]
     Indication: IMMUNOSUPPRESSION
  6. TRIMETHOPRIM [Concomitant]
     Indication: INFECTION PROPHYLAXIS
  7. VALGANCICLOVIR HCL [Concomitant]
     Indication: INFECTION PROPHYLAXIS
     Dosage: 450 MG DAILY
  8. CLONIDINE [Concomitant]
     Dosage: 0.2 MG, BID
  9. GLIPIZIDE [Concomitant]
     Dosage: 5 MG DAILY

REACTIONS (16)
  - ABDOMINAL PAIN [None]
  - ADENOVIRUS INFECTION [None]
  - AZOTAEMIA [None]
  - BLOOD URINE PRESENT [None]
  - DERMOID CYST [None]
  - DIABETES MELLITUS [None]
  - HAEMATURIA [None]
  - HYDRONEPHROSIS [None]
  - HYDROURETER [None]
  - NEPHRITIS [None]
  - NEPHROSTOMY [None]
  - NEUTROPENIA [None]
  - PYREXIA [None]
  - RENAL TUBULAR NECROSIS [None]
  - TENDERNESS [None]
  - TUBULOINTERSTITIAL NEPHRITIS [None]
